FAERS Safety Report 23028388 (Version 1)
Quarter: 2023Q4

REPORT INFORMATION
  Report Type: Spontaneous
  Country: US (occurrence: None)
  Receive Date: 20231004
  Receipt Date: 20231004
  Transmission Date: 20240110
  Serious: Yes (Hospitalization)
  Sender: FDA-Public Use
  Company Number: None

PATIENT
  Age: 67 Year
  Sex: Female
  Weight: 125.6 kg

DRUGS (1)
  1. PEMBROLIZUMAB [Suspect]
     Active Substance: PEMBROLIZUMAB
     Indication: Hodgkin^s disease
     Route: 042
     Dates: start: 20230926, end: 20230926

REACTIONS (4)
  - Chills [None]
  - Acute respiratory failure [None]
  - Chronic obstructive pulmonary disease [None]
  - Pulmonary oedema [None]

NARRATIVE: CASE EVENT DATE: 20230926
